FAERS Safety Report 22522234 (Version 2)
Quarter: 2023Q2

REPORT INFORMATION
  Report Type: Spontaneous
  Country: CN (occurrence: CN)
  Receive Date: 20230605
  Receipt Date: 20230606
  Transmission Date: 20230721
  Serious: Yes (Hospitalization, Other)
  Sender: FDA-Public Use
  Company Number: CN-ORGANON-O2305CHN002788

PATIENT
  Age: 32 Year
  Sex: Female
  Weight: 63 kg

DRUGS (9)
  1. FOLLITROPIN BETA [Suspect]
     Active Substance: FOLLITROPIN BETA
     Indication: Ovulation induction
     Dosage: 125IU, QD
     Dates: start: 20230425, end: 20230502
  2. FOLLITROPIN BETA [Suspect]
     Active Substance: FOLLITROPIN BETA
  3. MENOTROPINS [Suspect]
     Active Substance: MENOTROPINS
     Indication: Ovulation induction
     Dosage: 150IU, QD
     Route: 030
     Dates: start: 20230425, end: 20230503
  4. MENOTROPINS [Suspect]
     Active Substance: MENOTROPINS
     Dosage: 225IU, QD
     Route: 030
     Dates: start: 20230504, end: 20230504
  5. LUTROPIN ALFA [Suspect]
     Active Substance: LUTROPIN ALFA
     Indication: Ovulation induction
     Dosage: 75IU, QD
     Dates: start: 20230503, end: 20230503
  6. TRIPTORELIN ACETATE [Suspect]
     Active Substance: TRIPTORELIN ACETATE
     Indication: Ovulation induction
     Dosage: 0.1MG, QD
     Dates: start: 20230419, end: 20230503
  7. CHORIOGONADOTROPIN ALFA [Suspect]
     Active Substance: CHORIOGONADOTROPIN ALFA
     Indication: Ovulation induction
     Dosage: 250UG, QD
     Dates: start: 20230504, end: 20230504
  8. SODIUM CHLORIDE [Concomitant]
     Active Substance: SODIUM CHLORIDE
     Indication: Vehicle solution use
     Dosage: 2ML, QD
     Dates: start: 20230425, end: 20230503
  9. SODIUM CHLORIDE [Concomitant]
     Active Substance: SODIUM CHLORIDE
     Dosage: 2ML, QD
     Dates: start: 20230504, end: 20230504

REACTIONS (7)
  - Ovarian hyperstimulation syndrome [Recovering/Resolving]
  - Abdominal distension [Recovering/Resolving]
  - Abdominal pain [Recovering/Resolving]
  - Dizziness [Recovering/Resolving]
  - Vaginal haemorrhage [Recovering/Resolving]
  - Nausea [Recovering/Resolving]
  - Tension [Recovering/Resolving]

NARRATIVE: CASE EVENT DATE: 20230506
